APPROVED DRUG PRODUCT: NALOXONE HYDROCHLORIDE
Active Ingredient: NALOXONE HYDROCHLORIDE
Strength: 1MG/ML
Dosage Form/Route: INJECTABLE;INJECTION
Application: A215964 | Product #001 | TE Code: AP
Applicant: PH HEALTH LTD
Approved: Jul 29, 2022 | RLD: No | RS: No | Type: RX